FAERS Safety Report 10919552 (Version 1)
Quarter: 2015Q1

REPORT INFORMATION
  Report Type: Spontaneous
  Country: MX (occurrence: MX)
  Receive Date: 20150317
  Receipt Date: 20150317
  Transmission Date: 20150721
  Serious: Yes (Life-Threatening)
  Sender: FDA-Public Use
  Company Number: MX-ABBVIE-15K-107-1360509-00

PATIENT
  Age: 60 Year
  Sex: Female

DRUGS (4)
  1. METFORMIN [Concomitant]
     Active Substance: METFORMIN HYDROCHLORIDE
     Indication: DIABETES MELLITUS
     Dosage: 1-0-1/2
     Dates: start: 20060101, end: 20150201
  2. LEVOTHYROXINE [Concomitant]
     Active Substance: LEVOTHYROXINE
     Indication: HYPOTHYROIDISM
     Route: 048
     Dates: start: 20060101, end: 20150201
  3. LOSARTAN [Concomitant]
     Active Substance: LOSARTAN
     Indication: HYPERTENSION
     Route: 048
     Dates: start: 20060101, end: 20150201
  4. HUMIRA [Suspect]
     Active Substance: ADALIMUMAB
     Indication: PSORIASIS
     Route: 058
     Dates: start: 20121001, end: 20141001

REACTIONS (3)
  - Cryptogenic cirrhosis [Not Recovered/Not Resolved]
  - Ultrasound abdomen abnormal [Unknown]
  - Abdominal hernia [Unknown]

NARRATIVE: CASE EVENT DATE: 2013
